FAERS Safety Report 25735129 (Version 1)
Quarter: 2025Q3

REPORT INFORMATION
  Report Type: Spontaneous
  Country: US (occurrence: US)
  Receive Date: 20250828
  Receipt Date: 20250828
  Transmission Date: 20251021
  Serious: Yes (Other)
  Sender: CROWN LABORATORIES, INC.
  Company Number: US-Crown Laboratories, Inc.-2183384

PATIENT
  Sex: Female

DRUGS (1)
  1. PANOXYL ACNE BANISHING BODY (SPRAY) [Suspect]
     Active Substance: SALICYLIC ACID

REACTIONS (1)
  - Choking [Unknown]

NARRATIVE: CASE EVENT DATE: 20250707
